FAERS Safety Report 7276274-9 (Version None)
Quarter: 2011Q1

REPORT INFORMATION
  Report Type: 
  Country: None (occurrence: None)
  Receive Date: 20110131
  Receipt Date: 20110121
  Transmission Date: 20110831
  Serious: Yes (Life-Threatening)
  Sender: FDA-Public Use
  Company Number: 2011SP001587

PATIENT
  Age: 59 Year
  Sex: Female

DRUGS (12)
  1. PREDNISONE [Suspect]
     Indication: PRODUCT USED FOR UNKNOWN INDICATION
     Dosage: 7.5 MG;QD;PO
     Route: 048
  2. RECORMON [Concomitant]
  3. ESIDRIX [Concomitant]
  4. NEXIUM [Concomitant]
  5. KEPPRA [Concomitant]
  6. TEMGESIC [Concomitant]
  7. INTERFERON ALFA [Suspect]
     Indication: PRODUCT USED FOR UNKNOWN INDICATION
     Dosage: 3 MIU;TIW;SC
     Route: 058
  8. TORSEMIDE [Concomitant]
  9. BELOC ZOK [Concomitant]
  10. PHYSIOTENS [Concomitant]
  11. NOROXIN [Concomitant]
  12. PROGRAF [Suspect]
     Indication: PRODUCT USED FOR UNKNOWN INDICATION
     Dosage: 1 MG;QD;PO
     Route: 048

REACTIONS (10)
  - CONFUSIONAL STATE [None]
  - SEPTIC SHOCK [None]
  - PYREXIA [None]
  - SEPTIC ENCEPHALOPATHY [None]
  - RENAL FAILURE ACUTE [None]
  - COLITIS [None]
  - HEPATIC FAILURE [None]
  - SALMONELLOSIS [None]
  - MYOCARDIAL ISCHAEMIA [None]
  - MULTI-ORGAN DISORDER [None]
